FAERS Safety Report 4483219-3 (Version None)
Quarter: 2004Q3

REPORT INFORMATION
  Report Type: 
  Country: None (occurrence: None)
  Receive Date: 20040921
  Receipt Date: 20040610
  Transmission Date: 20050211
  Serious: Yes (Hospitalization)
  Sender: FDA-Public Use
  Company Number: 163-20785-04060314

PATIENT
  Age: 69 Year
  Sex: Female
  Weight: 88 kg

DRUGS (4)
  1. THALOMID [Suspect]
     Indication: ENDOMETRIAL CANCER METASTATIC
     Dosage: 200 MG INCREASED BY 100MG EVERY 2 WEEKS, AT BEDTIME, ORAL
     Route: 048
     Dates: start: 20040414, end: 20040605
  2. NAPROSYN [Concomitant]
  3. SENOKOT [Concomitant]
  4. SLO-MAGNESIUM (MAGNESIUM CHLORIDE) [Concomitant]

REACTIONS (4)
  - ANAEMIA [None]
  - ATRIAL FIBRILLATION [None]
  - DYSPNOEA [None]
  - LOWER GASTROINTESTINAL HAEMORRHAGE [None]
